FAERS Safety Report 9796776 (Version 2)
Quarter: 2014Q1

REPORT INFORMATION
  Report Type: Spontaneous
  Country: JP (occurrence: JP)
  Receive Date: 20140103
  Receipt Date: 20140103
  Transmission Date: 20141002
  Serious: Yes (Hospitalization)
  Sender: FDA-Public Use
  Company Number: JP-ASTRAZENECA-2013SE89183

PATIENT
  Age: 65 Year
  Sex: Male
  Weight: 51 kg

DRUGS (10)
  1. SYMBICORT TURBUHALER [Suspect]
     Indication: ASTHMA
     Dosage: 1 DF, FOUR TOMES DAILY
     Route: 055
     Dates: start: 20131120, end: 20131130
  2. CRESTOR [Suspect]
     Indication: DYSLIPIDAEMIA
     Route: 048
  3. BAYASPIRIN [Suspect]
     Route: 048
     Dates: end: 20131130
  4. PLAVIX [Suspect]
     Route: 048
  5. ARTIST [Suspect]
     Route: 048
     Dates: end: 20131130
  6. MICAMLO [Suspect]
     Dosage: EVERY DAY
     Route: 048
     Dates: end: 20131130
  7. FEBURIC [Suspect]
     Route: 048
  8. ZETIA [Suspect]
     Route: 048
  9. EPADEL S [Suspect]
     Route: 048
     Dates: end: 20131130
  10. MEPTIN [Concomitant]

REACTIONS (1)
  - Erythema multiforme [Not Recovered/Not Resolved]
